FAERS Safety Report 11944239 (Version 1)
Quarter: 2016Q1

REPORT INFORMATION
  Report Type: Spontaneous
  Country: ES (occurrence: ES)
  Receive Date: 20160125
  Receipt Date: 20160125
  Transmission Date: 20160526
  Serious: Yes (Hospitalization, Other)
  Sender: FDA-Public Use
  Company Number: ES-ACCORD-037172

PATIENT
  Sex: Male

DRUGS (7)
  1. DEFLAZACORT [Suspect]
     Active Substance: DEFLAZACORT
     Indication: HEART TRANSPLANT
  2. CYCLOPHOSPHAMIDE/CYCLOPHOSPHAMIDE MONOHYDRATE [Suspect]
     Active Substance: CYCLOPHOSPHAMIDE
     Indication: PLASMABLASTIC LYMPHOMA
  3. MYCOPHENOLIC ACID. [Suspect]
     Active Substance: MYCOPHENOLIC ACID
     Indication: HEART TRANSPLANT
  4. CICLOSPORIN [Suspect]
     Active Substance: CYCLOSPORINE
     Indication: HEART TRANSPLANT
  5. VINCRISTINE [Suspect]
     Active Substance: VINCRISTINE
     Indication: PLASMABLASTIC LYMPHOMA
  6. PREDNISONE. [Suspect]
     Active Substance: PREDNISONE
     Indication: PLASMABLASTIC LYMPHOMA
  7. DOXORUBICIN [Suspect]
     Active Substance: DOXORUBICIN
     Indication: PLASMABLASTIC LYMPHOMA
     Dosage: 1DF = 2 MG/ML

REACTIONS (6)
  - Cytomegalovirus mucocutaneous ulcer [Recovered/Resolved]
  - Pathogen resistance [None]
  - Febrile neutropenia [None]
  - Pseudomonal sepsis [Recovered/Resolved]
  - Plasmablastic lymphoma [Unknown]
  - Diverticulitis [Unknown]
